FAERS Safety Report 10107064 (Version 2)
Quarter: 2014Q3

REPORT INFORMATION
  Report Type: Other
  Country: None (occurrence: US)
  Receive Date: 20140424
  Receipt Date: 20140716
  Transmission Date: 20150326
  Serious: Yes (Death, Hospitalization, Other)
  Sender: FDA-Public Use
  Company Number: US-GSKPPD-2014GSK001541

PATIENT
  Age: 80 Year
  Sex: Female

DRUGS (6)
  1. ZETSRIL [Concomitant]
  2. ATENOLOL. [Concomitant]
     Active Substance: ATENOLOL
  3. ISOSORBIDE [Concomitant]
     Active Substance: ISOSORBIDE
  4. ASPIRIN. [Concomitant]
     Active Substance: ASPIRIN
  5. AVANDIA [Suspect]
     Active Substance: ROSIGLITAZONE MALEATE
     Indication: DIABETES MELLITUS
     Dosage: AVANDIA WAS NOT LISTED AMONG THE PATIENT^S DISCHARGE RECORDS.
     Route: 048
  6. PRAVACHOL [Concomitant]
     Active Substance: PRAVASTATIN SODIUM

REACTIONS (4)
  - Cardiogenic shock [Fatal]
  - Myocardial ischaemia [None]
  - Acute myocardial infarction [Not Recovered/Not Resolved]
  - Aortic stenosis [Not Recovered/Not Resolved]

NARRATIVE: CASE EVENT DATE: 20031007
